FAERS Safety Report 6839139-X (Version None)
Quarter: 2010Q2

REPORT INFORMATION
  Report Type: 
  Country: None (occurrence: None)
  Receive Date: 20100625
  Receipt Date: 20090521
  Transmission Date: 20101027
  Serious: Yes (Hospitalization)
  Sender: FDA-Public Use
  Company Number: VISP-PR-0905S-0224

PATIENT
  Age: 80 Year
  Sex: Male
  Weight: 86.002 kg

DRUGS (25)
  1. VISIPAQUE [Suspect]
     Indication: CHEST DISCOMFORT
     Dosage: 150 ML, SINGLE DOSE, I.V.
     Route: 042
     Dates: start: 20090216, end: 20090216
  2. VISIPAQUE [Suspect]
     Indication: DYSPNOEA
     Dosage: 150 ML, SINGLE DOSE, I.V.
     Route: 042
     Dates: start: 20090216, end: 20090216
  3. CLOPIDOGREL (STUDY DRUG) [Concomitant]
  4. CANGRELOR (STUDY DRUG) [Concomitant]
  5. ASPIRIN [Concomitant]
  6. BIVALIRUDIN [Concomitant]
  7. CLONIDINE [Concomitant]
  8. HYDROMORPHONE HYDROCHLORIDE [Concomitant]
  9. MIDAZOLAM HYDROCHLORIDE [Concomitant]
  10. NITRO PASTE (GLYCERYL TRINITRATE) [Concomitant]
  11. INSULIN [Concomitant]
  12. CARVEDILOL [Concomitant]
  13. ONDANSETRON [Concomitant]
  14. MINOXIDIL [Concomitant]
  15. AMLODIPINE [Concomitant]
  16. POTASSIUM [Concomitant]
  17. MAGNESIUM HYDROXIDE (MAALOX) [Concomitant]
  18. FUROSEMIDE [Concomitant]
  19. PANTOPRAZOLE [Concomitant]
  20. ALLOPURINOL [Concomitant]
  21. DEXTROPROPOXYPHENE NAPSILATE W/PARACETAMOL (PARACETAMOL) [Concomitant]
  22. GLYCERYL TRINITRATE (NITROGLYCERIN) [Concomitant]
  23. ASPIRIN [Concomitant]
  24. ACETAMINOPHEN [Concomitant]
  25. ALUMINUM HYDROXIDE GEL [Concomitant]

REACTIONS (1)
  - RENAL FAILURE ACUTE [None]
